FAERS Safety Report 18649887 (Version 2)
Quarter: 2022Q1

REPORT INFORMATION
  Report Type: Spontaneous
  Country: US (occurrence: US)
  Receive Date: 20201222
  Receipt Date: 20220322
  Transmission Date: 20220423
  Serious: No
  Sender: FDA-Public Use
  Company Number: US-SA-2020SA364804

PATIENT
  Age: 51 Year
  Sex: Female

DRUGS (2)
  1. KEVZARA [Suspect]
     Active Substance: SARILUMAB
     Dosage: 200 MG,OTHER
     Route: 058
     Dates: start: 2020, end: 2020
  2. KEVZARA [Suspect]
     Active Substance: SARILUMAB
     Dosage: 150 MG
     Route: 058
     Dates: start: 20200616

REACTIONS (2)
  - Product dose omission issue [Unknown]
  - Product dose omission issue [Unknown]

NARRATIVE: CASE EVENT DATE: 20200101
